FAERS Safety Report 23711789 (Version 1)
Quarter: 2024Q2

REPORT INFORMATION
  Report Type: Spontaneous
  Country: US (occurrence: None)
  Receive Date: 20240404
  Receipt Date: 20240404
  Transmission Date: 20240716
  Serious: Yes (Disabling)
  Sender: FDA-Public Use
  Company Number: None

PATIENT
  Age: 35 Year
  Sex: Female
  Weight: 51.3 kg

DRUGS (9)
  1. CAPLYTA [Suspect]
     Active Substance: LUMATEPERONE
     Indication: Bipolar disorder
     Dosage: OTHER QUANTITY : 1 CAPSULE(S);?FREQUENCY : AT BEDTIME;?
     Route: 048
     Dates: start: 20231201, end: 20240228
  2. SEROQUEL [Concomitant]
  3. LAMICTAL [Concomitant]
  4. ZYPREXA [Concomitant]
     Active Substance: OLANZAPINE
  5. Folice acid [Concomitant]
  6. FISH OIL [Concomitant]
  7. CHOLINE [Concomitant]
  8. Vitamin D [Concomitant]
  9. IRON [Concomitant]

REACTIONS (3)
  - Urinary tract infection [None]
  - Urinary tract infection [None]
  - Therapy cessation [None]

NARRATIVE: CASE EVENT DATE: 20231201
